FAERS Safety Report 4988133-2 (Version None)
Quarter: 2006Q2

REPORT INFORMATION
  Report Type: 
  Country: None (occurrence: None)
  Receive Date: 20060425
  Receipt Date: 20060413
  Transmission Date: 20061013
  Serious: Yes (Life-Threatening)
  Sender: FDA-Public Use
  Company Number: GXKR2006NL02154

PATIENT
  Age: 38 Year
  Sex: Female

DRUGS (2)
  1. CITALOPRAM HYDROBROMIDE [Suspect]
     Indication: DEPRESSION
     Dosage: 10 MG, QD
     Dates: start: 20060202, end: 20060217
  2. ALPRAZOLAM [Suspect]
     Indication: ANXIETY
     Dosage: BID
     Dates: start: 20060202, end: 20060217

REACTIONS (1)
  - HYPOGLYCAEMIA [None]
